FAERS Safety Report 14488404 (Version 5)
Quarter: 2019Q2

REPORT INFORMATION
  Report Type: Spontaneous
  Country: GB (occurrence: GB)
  Receive Date: 20180205
  Receipt Date: 20190614
  Transmission Date: 20190711
  Serious: Yes (Hospitalization)
  Sender: FDA-Public Use
  Company Number: GB-BIOMARINAP-GB-2018-116721

PATIENT
  Sex: Female
  Weight: 28.8 kg

DRUGS (2)
  1. EMLA [Concomitant]
     Active Substance: LIDOCAINE\PRILOCAINE
     Indication: PRODUCT USED FOR UNKNOWN INDICATION
     Dosage: 2.5 G, QW
     Route: 061
  2. VIMIZIM [Suspect]
     Active Substance: ELOSULFASE ALFA
     Indication: MUCOPOLYSACCHARIDOSIS IV
     Dosage: 60 MG, QW
     Route: 042
     Dates: start: 201407

REACTIONS (8)
  - Vomiting [Not Recovered/Not Resolved]
  - Arthralgia [Not Recovered/Not Resolved]
  - Pain in extremity [Not Recovered/Not Resolved]
  - Back pain [Not Recovered/Not Resolved]
  - Breakthrough pain [Unknown]
  - Joint dislocation [Not Recovered/Not Resolved]
  - Nausea [Not Recovered/Not Resolved]
  - Poor venous access [Unknown]
